FAERS Safety Report 7802100-2 (Version None)
Quarter: 2011Q4

REPORT INFORMATION
  Report Type: 
  Country: None (occurrence: None)
  Receive Date: 20111007
  Receipt Date: 20110922
  Transmission Date: 20120403
  Serious: Yes (Other)
  Sender: FDA-Public Use
  Company Number: PHHY2011JP85321

PATIENT
  Sex: Male
  Weight: 55 kg

DRUGS (13)
  1. AMLODIPINE BESYLATE/VALSARTAN [Suspect]
     Indication: HYPERTENSION
     Dosage: 1 DF, DAILY
     Route: 048
     Dates: start: 20100527, end: 20100928
  2. PLAVIX [Concomitant]
     Dosage: 25 MG, UNK
     Route: 048
     Dates: start: 20100513
  3. CRESTOR [Concomitant]
     Dosage: 2.5 MG, UNK
     Route: 048
     Dates: start: 20100513
  4. SEDEKOPAN [Concomitant]
     Dosage: 1.5 MG, UNK
     Route: 048
     Dates: start: 20100513, end: 20100803
  5. ARICEPT [Concomitant]
     Dosage: 3 MG, UNK
     Route: 048
     Dates: start: 20101012
  6. SG [Concomitant]
     Dosage: 1 G, UNK
     Route: 048
     Dates: start: 20100513
  7. LOXONIN [Concomitant]
     Dosage: 50 MG, UNK
     Dates: start: 20100428
  8. DIOVAN [Suspect]
     Dosage: 80 MG, DAILY
  9. RABEPRAZOLE SODIUM [Concomitant]
     Dosage: 10 MG, UNK
     Route: 048
     Dates: start: 20100513
  10. SENNOSIDE [Concomitant]
     Dosage: 24 MG, UNK
     Route: 048
     Dates: start: 20100513
  11. AMLODIPINE [Suspect]
     Dosage: 5 MG, DAILY
  12. SYMMETREL [Concomitant]
     Dosage: 200 MG, UNK
     Route: 048
     Dates: start: 20100513, end: 20101108
  13. OPAPROSMON [Concomitant]
     Dosage: 15 UG, UNK
     Route: 048
     Dates: start: 20100513

REACTIONS (2)
  - BLOOD PRESSURE DECREASED [None]
  - DEMENTIA [None]
